FAERS Safety Report 23897275 (Version 2)
Quarter: 2024Q2

REPORT INFORMATION
  Report Type: Report from Study
  Country: BR (occurrence: BR)
  Receive Date: 20240524
  Receipt Date: 20240531
  Transmission Date: 20240716
  Serious: Yes (Other)
  Sender: FDA-Public Use
  Company Number: BR-JNJFOC-20240553987

PATIENT
  Age: 61 Year
  Sex: Female
  Weight: 83 kg

DRUGS (8)
  1. SIMPONI [Suspect]
     Active Substance: GOLIMUMAB
     Indication: Rheumatoid arthritis
     Dosage: LAST DRUG APPLICATION: 08-APR-2024
     Route: 058
  2. SIMPONI [Suspect]
     Active Substance: GOLIMUMAB
  3. METHOTREXATE [Suspect]
     Active Substance: METHOTREXATE
     Route: 065
     Dates: start: 20240515
  4. METHOTREXATE [Suspect]
     Active Substance: METHOTREXATE
     Route: 065
  5. PREGABALIN [Concomitant]
     Active Substance: PREGABALIN
     Indication: Osteoarthritis
  6. PREGABALIN [Concomitant]
     Active Substance: PREGABALIN
     Indication: Osteoarthritis
  7. PREDNISONE [Concomitant]
     Active Substance: PREDNISONE
  8. FOLIC ACID [Concomitant]
     Active Substance: FOLIC ACID

REACTIONS (10)
  - Neuralgia [Unknown]
  - Rheumatoid arthritis [Unknown]
  - Gastrointestinal disorder [Unknown]
  - Blood disorder [Unknown]
  - Anxiety [Unknown]
  - Burning sensation [Unknown]
  - Somnolence [Unknown]
  - Pyrexia [Unknown]
  - Drug ineffective [Unknown]
  - Inappropriate schedule of product administration [Unknown]
